FAERS Safety Report 17068650 (Version 2)
Quarter: 2020Q4

REPORT INFORMATION
  Report Type: Spontaneous
  Country: US (occurrence: US)
  Receive Date: 20191123
  Receipt Date: 20201122
  Transmission Date: 20210113
  Serious: No
  Sender: FDA-Public Use
  Company Number: US-PURDUE-USA-2019-0149114

PATIENT
  Sex: Male
  Weight: 72.56 kg

DRUGS (4)
  1. METHOCARBAMOL. [Concomitant]
     Active Substance: METHOCARBAMOL
     Indication: SPINAL STENOSIS
     Dosage: 500 MG, UNK
     Route: 065
     Dates: start: 2012
  2. HYSINGLA ER [Suspect]
     Active Substance: HYDROCODONE BITARTRATE
     Indication: SPINAL STENOSIS
     Dosage: 20 MG, UNK
     Route: 048
     Dates: start: 2016
  3. GABAPENTIN. [Concomitant]
     Active Substance: GABAPENTIN
     Indication: SPINAL STENOSIS
     Dosage: 300 MG, UNK
     Route: 065
     Dates: start: 2012
  4. HYSINGLA ER [Suspect]
     Active Substance: HYDROCODONE BITARTRATE
     Indication: PAIN
     Dosage: 40 MG, UNK
     Route: 048

REACTIONS (2)
  - Pain [Unknown]
  - Unevaluable event [Unknown]
